FAERS Safety Report 11268920 (Version 1)
Quarter: 2015Q3

REPORT INFORMATION
  Report Type: Spontaneous
  Country: US (occurrence: None)
  Receive Date: 20150713
  Receipt Date: 20150713
  Transmission Date: 20151125
  Serious: Yes (Death)
  Sender: FDA-Public Use
  Company Number: None

PATIENT
  Age: 1 Day
  Sex: Male
  Weight: .5 kg

DRUGS (5)
  1. CALFACTANT [Suspect]
     Active Substance: CALFACTANT
     Indication: PROPHYLAXIS
     Dosage: 1 ADMINISTRATION RESPIRATORY
     Route: 055
     Dates: start: 20150602, end: 20150623
  2. CALFACTANT [Suspect]
     Active Substance: CALFACTANT
     Indication: RESPIRATORY DISTRESS
     Dosage: 1 ADMINISTRATION RESPIRATORY
     Route: 055
     Dates: start: 20150602, end: 20150623
  3. EPINEPHRINE. [Concomitant]
     Active Substance: EPINEPHRINE
  4. PHYTONADIONE. [Concomitant]
     Active Substance: PHYTONADIONE
  5. ERYTHROMYCIN. [Concomitant]
     Active Substance: ERYTHROMYCIN

REACTIONS (5)
  - Death neonatal [None]
  - Oxygen saturation decreased [None]
  - Cardio-respiratory arrest neonatal [None]
  - Product quality issue [None]
  - Product physical consistency issue [None]

NARRATIVE: CASE EVENT DATE: 20150623
